FAERS Safety Report 24169873 (Version 2)
Quarter: 2024Q3

REPORT INFORMATION
  Report Type: Spontaneous
  Country: PT (occurrence: PT)
  Receive Date: 20240803
  Receipt Date: 20240808
  Transmission Date: 20241017
  Serious: Yes (Hospitalization, Other)
  Sender: AUROBINDO
  Company Number: PT-FreseniusKabi-FK202411354

PATIENT
  Age: 48 Year
  Sex: Female

DRUGS (2)
  1. CAPECITABINE [Suspect]
     Active Substance: CAPECITABINE
     Indication: Rectal adenocarcinoma
     Dosage: UNK,XELOX
     Route: 042
  2. OXALIPLATIN [Suspect]
     Active Substance: OXALIPLATIN
     Indication: Rectal adenocarcinoma
     Dosage: UNK,XELOX
     Route: 042

REACTIONS (3)
  - Febrile neutropenia [Recovering/Resolving]
  - Gastrointestinal inflammation [Recovering/Resolving]
  - Fungaemia [Recovered/Resolved]
